FAERS Safety Report 6226722-8 (Version None)
Quarter: 2009Q2

REPORT INFORMATION
  Report Type: 
  Country: None (occurrence: None)
  Receive Date: 20090612
  Receipt Date: 20090604
  Transmission Date: 20091009
  Serious: Yes (Hospitalization)
  Sender: FDA-Public Use
  Company Number: US-ROCHE-636725

PATIENT
  Age: 90 Year
  Sex: Female

DRUGS (2)
  1. BONIVA [Suspect]
     Indication: OSTEOPOROSIS
     Dosage: MISSED TWO DOSES
     Route: 048
  2. BONIVA [Suspect]
     Route: 048

REACTIONS (2)
  - BLADDER OPERATION [None]
  - SURGERY [None]
